FAERS Safety Report 24121041 (Version 1)
Quarter: 2024Q3

REPORT INFORMATION
  Report Type: Spontaneous
  Country: US (occurrence: None)
  Receive Date: 20240722
  Receipt Date: 20240722
  Transmission Date: 20241017
  Serious: Yes (Hospitalization)
  Sender: Public
  Company Number: None

PATIENT
  Sex: Female

DRUGS (5)
  1. HUMIRA [Suspect]
     Active Substance: ADALIMUMAB
     Indication: Rheumatoid arthritis
     Dosage: FREQUENCY : EVERY OTHER WEEK;?
     Route: 058
     Dates: start: 20230118
  2. KENALOG-10 [Concomitant]
  3. KETOROLAC [Concomitant]
  4. VANCOMYCIN [Concomitant]
  5. DEVICE [Suspect]
     Active Substance: DEVICE

REACTIONS (3)
  - Hypokinesia [None]
  - Pain [None]
  - Device malfunction [None]
